FAERS Safety Report 25044861 (Version 7)
Quarter: 2025Q3

REPORT INFORMATION
  Report Type: Spontaneous
  Country: EU (occurrence: EU)
  Receive Date: 20250306
  Receipt Date: 20250704
  Transmission Date: 20251021
  Serious: Yes (Other)
  Sender: NOVARTIS
  Company Number: EU-002147023-NVSC2025CZ035163

PATIENT
  Age: 44 Year
  Sex: Female

DRUGS (22)
  1. KISQALI [Suspect]
     Active Substance: RIBOCICLIB SUCCINATE
     Indication: Breast cancer stage IV
     Dosage: 600 MG, QD ((TWO CYCLES)
     Route: 065
  2. KISQALI [Suspect]
     Active Substance: RIBOCICLIB SUCCINATE
     Indication: Breast cancer metastatic
     Dosage: 400 MG, QD (DOSE REDUCED STARTING FROM THE FROM THE THIRD CYCLE)
     Route: 065
  3. KISQALI [Suspect]
     Active Substance: RIBOCICLIB SUCCINATE
     Dosage: 600 MG, QD
     Route: 065
  4. KISQALI [Suspect]
     Active Substance: RIBOCICLIB SUCCINATE
     Dosage: 400 MG, QD
     Route: 065
  5. LETROZOLE [Suspect]
     Active Substance: LETROZOLE
     Indication: Breast cancer stage IV
     Dosage: 2.5 MG, QD
     Route: 065
  6. LETROZOLE [Suspect]
     Active Substance: LETROZOLE
     Indication: Hypothyroidism
  7. LETROZOLE [Suspect]
     Active Substance: LETROZOLE
     Indication: Inflammatory carcinoma of breast stage IV
  8. LETROZOLE [Suspect]
     Active Substance: LETROZOLE
     Indication: Breast cancer metastatic
  9. RIBOCICLIB [Suspect]
     Active Substance: RIBOCICLIB
     Indication: Inflammatory carcinoma of breast stage IV
     Route: 065
  10. RIBOCICLIB [Suspect]
     Active Substance: RIBOCICLIB
     Indication: Inflammatory carcinoma of the breast
     Dosage: 600 MG, QD
     Route: 058
  11. DENOSUMAB [Suspect]
     Active Substance: DENOSUMAB
     Indication: Metastases to bone
     Dosage: 120 MG, Q4WK (EVERY 28 DAYS)
     Route: 065
  12. DENOSUMAB [Suspect]
     Active Substance: DENOSUMAB
     Indication: Radiotherapy
     Route: 065
  13. DENOSUMAB [Suspect]
     Active Substance: DENOSUMAB
     Route: 058
  14. GOSERELIN [Concomitant]
     Active Substance: GOSERELIN
     Indication: Breast cancer stage IV
     Route: 058
  15. GOSERELIN [Concomitant]
     Active Substance: GOSERELIN
     Indication: Inflammatory carcinoma of breast stage IV
     Route: 058
  16. GOSERELIN [Concomitant]
     Active Substance: GOSERELIN
     Indication: Breast cancer metastatic
  17. GOSERELIN [Concomitant]
     Active Substance: GOSERELIN
     Indication: Hormone receptor positive breast cancer
  18. LETROZOLE [Concomitant]
     Active Substance: LETROZOLE
     Indication: Hypothyroidism
     Route: 065
  19. TRAMADOL [Concomitant]
     Active Substance: TRAMADOL
     Indication: Pain
     Route: 065
  20. ACETAMINOPHEN [Concomitant]
     Active Substance: ACETAMINOPHEN
     Indication: Pain
     Route: 065
  21. AMOXICILLIN\CLAVULANATE POTASSIUM [Concomitant]
     Active Substance: AMOXICILLIN\CLAVULANATE POTASSIUM
     Indication: Antibiotic therapy
     Route: 065
  22. ACETAMINOPHEN\TRAMADOL HYDROCHLORIDE [Concomitant]
     Active Substance: ACETAMINOPHEN\TRAMADOL HYDROCHLORIDE
     Indication: Analgesic therapy
     Route: 065

REACTIONS (12)
  - Neutropenia [Recovered/Resolved]
  - Electrocardiogram QT prolonged [Recovered/Resolved]
  - Toxicity to various agents [Recovered/Resolved]
  - Hypercholesterolaemia [Unknown]
  - Obesity [Unknown]
  - Periodontitis [Recovering/Resolving]
  - Palpitations [Recovered/Resolved]
  - Weight increased [Not Recovered/Not Resolved]
  - Nausea [Unknown]
  - Seizure [Recovered/Resolved]
  - Lymphoedema [Unknown]
  - Blood triglycerides increased [Unknown]
